FAERS Safety Report 21860895 (Version 1)
Quarter: 2023Q1

REPORT INFORMATION
  Report Type: Spontaneous
  Country: US (occurrence: US)
  Receive Date: 20230113
  Receipt Date: 20230113
  Transmission Date: 20230417
  Serious: Yes (Hospitalization, Other)
  Sender: FDA-Public Use
  Company Number: US-PFIZER INC-202300013331

PATIENT
  Age: 76 Year
  Sex: Female
  Weight: 53.52 kg

DRUGS (2)
  1. LEVOXYL [Suspect]
     Active Substance: LEVOTHYROXINE SODIUM
     Indication: Thyroidectomy
     Dosage: 75 UG, 1X/DAY
  2. SPIRONOLACTONE [Concomitant]
     Active Substance: SPIRONOLACTONE
     Dosage: UNK, 2X/DAY (1-50MG TABLET TWICE A DAY)

REACTIONS (10)
  - Oedema peripheral [Not Recovered/Not Resolved]
  - Pancreatic carcinoma [Recovering/Resolving]
  - Rectal neoplasm [Unknown]
  - Cervix neoplasm [Unknown]
  - Blood glucose decreased [Unknown]
  - Stress [Unknown]
  - Weight decreased [Unknown]
  - Body height decreased [Unknown]
  - Cardiac disorder [Unknown]
  - White blood cell count decreased [Unknown]

NARRATIVE: CASE EVENT DATE: 20200201
